FAERS Safety Report 10196408 (Version 2)
Quarter: 2014Q2

REPORT INFORMATION
  Report Type: Spontaneous
  Country: IT (occurrence: IT)
  Receive Date: 20140527
  Receipt Date: 20140527
  Transmission Date: 20141212
  Serious: Yes (Death, Hospitalization)
  Sender: FDA-Public Use
  Company Number: IT-NOVOPROD-381617

PATIENT
  Age: 86 Year
  Sex: Male

DRUGS (2)
  1. NOVONORM [Suspect]
     Indication: DIABETES MELLITUS
     Dosage: 4 MG, QD (2.0 MG, 2 TABLETS/ DIE)
     Route: 065
     Dates: start: 20090401
  2. LANTUS [Concomitant]
     Dosage: 10 U, QD
     Route: 065

REACTIONS (2)
  - Death [Fatal]
  - Hypoglycaemia [Recovered/Resolved]
